FAERS Safety Report 13351798 (Version 1)
Quarter: 2017Q1

REPORT INFORMATION
  Report Type: Other
  Country: CN (occurrence: CN)
  Receive Date: 20170320
  Receipt Date: 20170320
  Transmission Date: 20170429
  Serious: Yes (Other)
  Sender: FDA-Public Use
  Company Number: CN-GE HEALTHCARE LIFE SCIENCES-2017CSU000480

PATIENT

DRUGS (3)
  1. CEFOPERAZONE SODIUM AND SULBACTAM SODIUM [Concomitant]
     Active Substance: CEFOPERAZONE SODIUM\SULBACTAM SODIUM
     Indication: URINARY TRACT INFECTION
     Dosage: 3 G, BID
     Route: 042
     Dates: start: 20170103, end: 20170114
  2. SODIUM CHLORIDE. [Concomitant]
     Active Substance: SODIUM CHLORIDE
     Indication: MEDICATION DILUTION
     Dosage: 100 ML, BID
     Route: 042
     Dates: start: 20170103, end: 20170114
  3. OMNIPAQUE [Suspect]
     Active Substance: IOHEXOL
     Indication: RADIOTHERAPY
     Dosage: 350 ML, SINGLE
     Route: 061
     Dates: start: 20170105, end: 20170105

REACTIONS (3)
  - Off label use [Recovered/Resolved]
  - Contrast media allergy [Recovered/Resolved]
  - Urticaria [Recovered/Resolved]

NARRATIVE: CASE EVENT DATE: 20170105
